FAERS Safety Report 18844071 (Version 1)
Quarter: 2021Q1

REPORT INFORMATION
  Report Type: Spontaneous
  Country: US (occurrence: US)
  Receive Date: 20210203
  Receipt Date: 20210203
  Transmission Date: 20210419
  Serious: No
  Sender: FDA-Public Use
  Company Number: None

PATIENT
  Age: 41 Year
  Sex: Female
  Weight: 114.3 kg

DRUGS (2)
  1. STERILE WATER FOR INJECTION [Concomitant]
     Active Substance: WATER
     Dates: start: 20210131, end: 20210203
  2. HEMIN [Suspect]
     Active Substance: HEMIN
     Indication: PORPHYRIA
     Route: 040
     Dates: start: 20210131, end: 20210203

REACTIONS (2)
  - Infusion site erythema [None]
  - Infusion site vesicles [None]

NARRATIVE: CASE EVENT DATE: 20210201
